FAERS Safety Report 9276451 (Version 4)
Quarter: 2014Q2

REPORT INFORMATION
  Report Type: Spontaneous
  Country: US (occurrence: US)
  Receive Date: 20130507
  Receipt Date: 20140609
  Transmission Date: 20141212
  Serious: Yes (Other)
  Sender: FDA-Public Use
  Company Number: US-PFIZER INC-2013141523

PATIENT
  Age: 54 Year
  Sex: Female

DRUGS (26)
  1. LYRICA [Suspect]
     Dosage: 150 MG, TWICE DAILY
     Route: 048
  2. VALTREX [Concomitant]
     Dosage: 500 MG, 2X/DAY (1 TABLET ORALLY EVERY 12 HRS)
     Route: 048
  3. HYDROCODONE W/ACETAMINOPHEN [Concomitant]
     Indication: PAIN
     Dosage: 1 TABLET ORALLY Q4H AS NEEDED
     Route: 048
  4. LAMICTAL [Concomitant]
     Dosage: 200 MG, DAILY
     Route: 048
  5. ATENOLOL [Concomitant]
     Dosage: 25MG, 1X/DAY
     Route: 048
  6. AMBIEN [Concomitant]
     Dosage: 10 MG, 1 TABLET AT BEDTIME AS NEEDED ORALLY ONCE A DAY
     Route: 048
  7. NORVASC [Concomitant]
     Dosage: 5 MG, 1X/DAY
     Route: 048
  8. VALIUM [Concomitant]
     Dosage: 1 DF, 3X/DAY
     Route: 048
  9. MS-CONTIN [Concomitant]
     Dosage: 15 MG, 4X/DAY
     Route: 048
  10. CYMBALTA [Concomitant]
     Dosage: 1 DF, TAKE ONE CAPSULE EVERY DAY
     Route: 048
  11. ZYRTEC ALLERGY [Concomitant]
     Dosage: 10 MG, 1X/DAY
     Route: 048
  12. ASPIR-LOW [Concomitant]
     Dosage: 81 MG, 1X/DAY
     Route: 048
  13. MIRALAX POWDER [Concomitant]
     Dosage: UNK, 1 TABLESPOON IN WATER ORALLY TID PRN
     Route: 048
  14. TRIAMCINOLONE ACETONIDE [Concomitant]
     Dosage: 1 APPLICATION TO AFFECTED AREA, 2X/DAY
     Route: 061
  15. OMEPRAZOLE [Concomitant]
     Dosage: 40 MG, 1X/DAY
     Route: 048
  16. PODOFILOX [Concomitant]
     Indication: SKIN PAPILLOMA
     Dosage: 1 GTT, 2X/DAY
     Route: 061
  17. FEXOFENADINE HCL [Concomitant]
     Dosage: 180 MG, 1X/DAY
     Route: 048
  18. TRAZODONE HCL [Concomitant]
     Dosage: 200 MG, 1X/DAY (2 TABS NIGHTLY)
  19. FLONASE [Concomitant]
     Dosage: UNK, 1X/DAY (2 SPRAYS IN EACH NOSTRIL)
     Route: 045
  20. BLEPH-10 [Concomitant]
     Indication: EYE DISORDER
     Dosage: 1 GTT, EVERY 4 HRS
     Route: 047
  21. MOTRIN [Concomitant]
     Dosage: 800 MG, 3X/DAY
     Route: 048
  22. LATISSE [Concomitant]
     Dosage: 1 GTT, 1X/DAY
     Route: 061
  23. TOPAMAX [Concomitant]
     Dosage: UNK
  24. AMLODIPINE [Concomitant]
     Dosage: UNK
  25. HYDROCODONE [Concomitant]
     Dosage: UNK
  26. IBUPROFEN [Concomitant]
     Dosage: 800, UNK

REACTIONS (2)
  - Hand deformity [Unknown]
  - Pain [Unknown]
